FAERS Safety Report 4837167-7 (Version None)
Quarter: 2005Q4

REPORT INFORMATION
  Report Type: 
  Country: None (occurrence: None)
  Receive Date: 20051122
  Receipt Date: 20051109
  Transmission Date: 20060501
  Serious: Yes (Hospitalization)
  Sender: FDA-Public Use
  Company Number: 2005110493

PATIENT
  Sex: Male
  Weight: 1.8734 kg

DRUGS (2)
  1. DEPO-PROVERA SUSPENSION/INJ [Suspect]
     Indication: CONTRACEPTION
     Dosage: SEE IMAGE
     Route: 064
     Dates: start: 20010607, end: 20010607
  2. DEPO-PROVERA SUSPENSION/INJ [Suspect]
     Indication: CONTRACEPTION
     Dosage: SEE IMAGE
     Route: 064
     Dates: start: 20050606, end: 20050606

REACTIONS (4)
  - DRUG EXPOSURE DURING PREGNANCY [None]
  - POOR WEIGHT GAIN NEONATAL [None]
  - PREMATURE BABY [None]
  - UNINTENDED PREGNANCY [None]
